FAERS Safety Report 22291710 (Version 1)
Quarter: 2023Q2

REPORT INFORMATION
  Report Type: Spontaneous
  Country: US (occurrence: US)
  Receive Date: 20230507
  Receipt Date: 20230507
  Transmission Date: 20230722
  Serious: No
  Sender: FDA-Public Use
  Company Number: US-SANOFI-01597330

PATIENT

DRUGS (6)
  1. CAMPATH [Suspect]
     Active Substance: ALEMTUZUMAB
     Indication: Sickle cell disease
     Dosage: UNK
  2. CAMPATH [Suspect]
     Active Substance: ALEMTUZUMAB
     Indication: Stem cell transplant
  3. MELPHALAN [Concomitant]
     Active Substance: MELPHALAN
     Indication: Sickle cell disease
  4. MELPHALAN [Concomitant]
     Active Substance: MELPHALAN
     Indication: Stem cell transplant
  5. FLUDARABINE [Concomitant]
     Active Substance: FLUDARABINE PHOSPHATE
     Indication: Sickle cell disease
  6. FLUDARABINE [Concomitant]
     Active Substance: FLUDARABINE PHOSPHATE
     Indication: Stem cell transplant

REACTIONS (1)
  - Product use in unapproved indication [Unknown]
